FAERS Safety Report 5213719-X (Version None)
Quarter: 2007Q1

REPORT INFORMATION
  Report Type: 
  Country: None (occurrence: None)
  Receive Date: 20070119
  Receipt Date: 20070108
  Transmission Date: 20070707
  Serious: Yes (Other)
  Sender: FDA-Public Use
  Company Number: AU-PFIZER INC-2007002987

PATIENT
  Sex: Male

DRUGS (1)
  1. SILDENAFIL (PAH) [Suspect]
     Indication: PULMONARY HYPERTENSION

REACTIONS (3)
  - DIABETIC NEUROPATHY [None]
  - GAIT DISTURBANCE [None]
  - PAIN IN EXTREMITY [None]
